FAERS Safety Report 16976394 (Version 1)
Quarter: 2019Q4

REPORT INFORMATION
  Report Type: Spontaneous
  Country: CN (occurrence: CN)
  Receive Date: 20191030
  Receipt Date: 20191030
  Transmission Date: 20200122
  Serious: Yes (Hospitalization)
  Sender: FDA-Public Use
  Company Number: CN-009507513-1910CHN015019

PATIENT
  Age: 53 Year
  Sex: Female

DRUGS (10)
  1. VANCOMYCIN [Suspect]
     Active Substance: VANCOMYCIN
     Dosage: UNK
     Dates: start: 20181221, end: 20190108
  2. VANCOMYCIN [Suspect]
     Active Substance: VANCOMYCIN
     Indication: CHOLANGITIS INFECTIVE
     Dosage: 1 GRAM, Q12H
     Route: 041
     Dates: start: 20181212, end: 20181216
  3. VORICONAZOLE. [Suspect]
     Active Substance: VORICONAZOLE
     Indication: CHOLANGITIS INFECTIVE
     Dosage: 200 MILLIGRAM, Q24H
     Dates: start: 20181216, end: 20181218
  4. PIPERACILLIN SODIUM (+) SULBACTAM SODIUM [Concomitant]
     Active Substance: PIPERACILLIN SODIUM\SULBACTAM SODIUM
     Indication: CHOLANGITIS INFECTIVE
     Dosage: 2.5 GRAM, Q12H
     Route: 041
     Dates: start: 20181209, end: 20181212
  5. LEVOFLOXACIN. [Concomitant]
     Active Substance: LEVOFLOXACIN
     Indication: CHOLANGITIS INFECTIVE
     Dosage: 0.5 GRAM, Q24H
     Route: 041
     Dates: start: 20181209, end: 20181212
  6. TIGECYCLINE. [Suspect]
     Active Substance: TIGECYCLINE
     Dosage: 50 MILLIGRAM, Q12H
     Route: 041
     Dates: start: 201812, end: 20181221
  7. IMIPENEM AND CILASTATIN [Suspect]
     Active Substance: CILASTATIN SODIUM\IMIPENEM
     Indication: CHOLANGITIS INFECTIVE
     Dosage: 0.5 GRAM, Q8H
     Route: 041
     Dates: start: 20181212, end: 20181216
  8. IMIPENEM AND CILASTATIN [Suspect]
     Active Substance: CILASTATIN SODIUM\IMIPENEM
     Indication: PATHOGEN RESISTANCE
  9. TIGECYCLINE. [Suspect]
     Active Substance: TIGECYCLINE
     Indication: CHOLANGITIS INFECTIVE
     Dosage: 100 MILLIGRAM, FIRST DOSE
     Route: 041
     Dates: start: 20181216
  10. IMIPENEM AND CILASTATIN [Suspect]
     Active Substance: CILASTATIN SODIUM\IMIPENEM
     Indication: ESCHERICHIA INFECTION
     Dosage: UNK
     Route: 041
     Dates: start: 20181217, end: 20181218

REACTIONS (1)
  - Therapeutic product effect incomplete [Unknown]

NARRATIVE: CASE EVENT DATE: 201812
